FAERS Safety Report 13492192 (Version 2)
Quarter: 2017Q2

REPORT INFORMATION
  Report Type: Spontaneous
  Country: US (occurrence: US)
  Receive Date: 20170427
  Receipt Date: 20170630
  Transmission Date: 20170830
  Serious: No
  Sender: FDA-Public Use
  Company Number: US-JNJFOC-20170427397

PATIENT
  Sex: Male

DRUGS (7)
  1. RISPERDAL [Suspect]
     Active Substance: RISPERIDONE
     Indication: ATTENTION DEFICIT/HYPERACTIVITY DISORDER
     Route: 048
     Dates: end: 2014
  2. RISPERDAL [Suspect]
     Active Substance: RISPERIDONE
     Indication: ANXIETY DISORDER
     Dosage: VARYING DOSES OF 0.5 MG AND 01 MG
     Route: 048
     Dates: start: 2006, end: 2008
  3. RISPERDAL [Suspect]
     Active Substance: RISPERIDONE
     Indication: ANXIETY DISORDER
     Route: 048
     Dates: end: 2014
  4. RISPERIDONE. [Suspect]
     Active Substance: RISPERIDONE
     Indication: ATTENTION DEFICIT/HYPERACTIVITY DISORDER
     Dosage: VARYING DOSES OF 0.5 MG, 01 MG, 02 MG AND 03 MG.
     Route: 048
     Dates: start: 2009, end: 2014
  5. RISPERDAL [Suspect]
     Active Substance: RISPERIDONE
     Indication: ATTENTION DEFICIT/HYPERACTIVITY DISORDER
     Dosage: VARYING DOSES OF 0.5 MG AND 01 MG
     Route: 048
     Dates: start: 2006, end: 2008
  6. RISPERIDONE. [Suspect]
     Active Substance: RISPERIDONE
     Indication: ANXIETY DISORDER
     Dosage: VARYING DOSES OF 0.5 MG, 01 MG, 02 MG AND 03 MG.
     Route: 048
     Dates: start: 2009, end: 2014
  7. SEROQUEL [Suspect]
     Active Substance: QUETIAPINE FUMARATE
     Indication: PRODUCT USED FOR UNKNOWN INDICATION
     Dosage: VARYING DOSES OF 25 MG AND 50 MG
     Route: 065
     Dates: start: 2007, end: 2012

REACTIONS (8)
  - Weight increased [Unknown]
  - Hypersomnia [Unknown]
  - Sedation [Unknown]
  - Off label use [Unknown]
  - Gynaecomastia [Unknown]
  - Hormone level abnormal [Unknown]
  - Product use in unapproved indication [Unknown]
  - Emotional disorder [Unknown]

NARRATIVE: CASE EVENT DATE: 2006
